FAERS Safety Report 9439589 (Version 1)
Quarter: 2013Q3

REPORT INFORMATION
  Report Type: Spontaneous
  Country: US (occurrence: US)
  Receive Date: 20130805
  Receipt Date: 20130805
  Transmission Date: 20140515
  Serious: No
  Sender: FDA-Public Use
  Company Number: US-009507513-1307USA004221

PATIENT
  Sex: 0

DRUGS (1)
  1. ASMANEX TWISTHALER [Suspect]
     Dosage: 2 PUFFS, TWICE A DAY
     Route: 055
     Dates: start: 201110

REACTIONS (4)
  - Drug dose omission [Unknown]
  - Incorrect dose administered [Unknown]
  - No adverse event [Unknown]
  - Product quality issue [Unknown]
